FAERS Safety Report 8266253-7 (Version None)
Quarter: 2012Q2

REPORT INFORMATION
  Report Type: 
  Country: None (occurrence: None)
  Receive Date: 20120406
  Receipt Date: 20120329
  Transmission Date: 20120825
  Serious: Yes (Other)
  Sender: FDA-Public Use
  Company Number: JP-VERTEX PHARMACEUTICALS INC.-AE-2012-004723

PATIENT
  Age: 66 Year
  Sex: Female

DRUGS (6)
  1. RIBAVIRIN [Concomitant]
     Indication: HEPATITIS C
     Route: 048
     Dates: start: 20120207, end: 20120313
  2. TELAVIC (TELAPREVIR) [Suspect]
     Indication: HEPATITIS C
     Route: 048
     Dates: start: 20120207
  3. LEDOLPER [Concomitant]
     Route: 048
     Dates: start: 20120207
  4. PEGINTERFERON ALFA-2B [Concomitant]
     Indication: HEPATITIS C
     Route: 051
     Dates: start: 20120207
  5. RIBAVIRIN [Concomitant]
     Route: 048
     Dates: start: 20120314
  6. ACETAMINOPHEN [Concomitant]
     Route: 048
     Dates: start: 20120207

REACTIONS (2)
  - RASH [None]
  - SKIN DISORDER [None]
